FAERS Safety Report 6430864-1 (Version None)
Quarter: 2009Q4

REPORT INFORMATION
  Report Type: 
  Country: None (occurrence: None)
  Receive Date: 20091106
  Receipt Date: 20091027
  Transmission Date: 20100525
  Serious: Yes (Other)
  Sender: FDA-Public Use
  Company Number: GB-PFIZER INC-2009288755

PATIENT
  Age: 41 Year
  Sex: Male

DRUGS (6)
  1. MARAVIROC [Suspect]
     Indication: HIV INFECTION
  2. BACTRIM [Suspect]
     Indication: ANTIFUNGAL PROPHYLAXIS
  3. BACTRIM [Suspect]
  4. LAMIVUDINE [Suspect]
     Indication: HIV INFECTION
  5. PREZISTA [Suspect]
     Indication: HIV INFECTION
  6. RALTEGRAVIR [Suspect]
     Indication: HIV INFECTION

REACTIONS (2)
  - STEVENS-JOHNSON SYNDROME [None]
  - VIRAL LOAD INCREASED [None]
